FAERS Safety Report 22601834 (Version 1)
Quarter: 2023Q2

REPORT INFORMATION
  Report Type: Spontaneous
  Country: CN (occurrence: None)
  Receive Date: 20230614
  Receipt Date: 20230614
  Transmission Date: 20230722
  Serious: Yes (Other)
  Sender: FDA-Public Use
  Company Number: 2023A133249

PATIENT
  Age: 45 Year
  Sex: Female
  Weight: 60 kg

DRUGS (3)
  1. OSIMERTINIB MESYLATE [Suspect]
     Active Substance: OSIMERTINIB MESYLATE
     Indication: Lung neoplasm malignant
     Route: 048
     Dates: start: 20230517, end: 20230602
  2. DEXAMETHASONE [Concomitant]
     Active Substance: DEXAMETHASONE
     Route: 042
  3. PROMETHAZINE [Concomitant]
     Active Substance: PROMETHAZINE HYDROCHLORIDE
     Route: 030

REACTIONS (3)
  - Pruritus [Recovering/Resolving]
  - Anaphylactic reaction [Unknown]
  - Erythema [Unknown]

NARRATIVE: CASE EVENT DATE: 20230529
